FAERS Safety Report 8539169-6 (Version None)
Quarter: 2012Q3

REPORT INFORMATION
  Report Type: 
  Country: None (occurrence: None)
  Receive Date: 20120726
  Receipt Date: 20120717
  Transmission Date: 20120928
  Serious: Yes (Hospitalization)
  Sender: FDA-Public Use
  Company Number: US-BRISTOL-MYERS SQUIBB COMPANY-16775736

PATIENT
  Age: 57 Year
  Sex: Female

DRUGS (1)
  1. YERVOY [Suspect]
     Dosage: LAST DOSE: MAY12, NO OF DOSE:8, DOSE 3MG/KG LAST YEAR

REACTIONS (5)
  - PERIPHERAL SENSORY NEUROPATHY [None]
  - HEADACHE [None]
  - DYSPHONIA [None]
  - DYSPHAGIA [None]
  - ATAXIA [None]
